FAERS Safety Report 13721998 (Version 1)
Quarter: 2017Q3

REPORT INFORMATION
  Report Type: Spontaneous
  Country: US (occurrence: US)
  Receive Date: 20170706
  Receipt Date: 20170706
  Transmission Date: 20171127
  Serious: No
  Sender: FDA-Public Use
  Company Number: US-PFIZER INC-2017283117

PATIENT
  Age: 64 Year
  Sex: Female
  Weight: 45.35 kg

DRUGS (3)
  1. DICLOFENAC [Concomitant]
     Active Substance: DICLOFENAC
     Dosage: 50 MG, UNK
  2. HYDROCORTISONE. [Suspect]
     Active Substance: HYDROCORTISONE
     Indication: ARTHRALGIA
     Dosage: UNK
     Route: 048
     Dates: start: 2015
  3. HYDROCORTISONE. [Suspect]
     Active Substance: HYDROCORTISONE
     Dosage: 5 MG, 2X/DAY
     Route: 048
     Dates: start: 20170626

REACTIONS (3)
  - Expired product administered [Unknown]
  - Pain [Not Recovered/Not Resolved]
  - Arthralgia [Not Recovered/Not Resolved]

NARRATIVE: CASE EVENT DATE: 201706
